FAERS Safety Report 21369693 (Version 1)
Quarter: 2022Q3

REPORT INFORMATION
  Report Type: Spontaneous
  Country: US (occurrence: None)
  Receive Date: 20220922
  Receipt Date: 20220922
  Transmission Date: 20221027
  Serious: Yes (Other)
  Sender: FDA-Public Use
  Company Number: None

PATIENT
  Age: 47 Year
  Sex: Female
  Weight: 140 kg

DRUGS (11)
  1. AJOVY [Suspect]
     Active Substance: FREMANEZUMAB-VFRM
     Indication: Migraine
     Dosage: OTHER FREQUENCY : ONCE A MONTH;?OTHER ROUTE : INJECTION IN THE UPPER THIGH;?
     Route: 050
     Dates: start: 20211127, end: 20220827
  2. Loop Recorder [Concomitant]
  3. NURTEC ODT [Concomitant]
     Active Substance: RIMEGEPANT SULFATE
  4. Aspirin 91mg [Concomitant]
  5. TESTOSTERONE [Concomitant]
     Active Substance: TESTOSTERONE
  6. PRASTERONE [Concomitant]
     Active Substance: PRASTERONE
  7. IRON [Concomitant]
     Active Substance: IRON
  8. VITAMINS [Concomitant]
     Active Substance: VITAMINS
  9. VITAMIN D NOS [Concomitant]
     Active Substance: VITAMIN D NOS
  10. GLUCOSAMINE [Concomitant]
     Active Substance: GLUCOSAMINE
  11. FIBER [Concomitant]
     Active Substance: PSYLLIUM HUSK

REACTIONS (7)
  - Oedema peripheral [None]
  - Injection site hypersensitivity [None]
  - Weight increased [None]
  - Constipation [None]
  - Arthralgia [None]
  - Amenorrhoea [None]
  - Feeling abnormal [None]

NARRATIVE: CASE EVENT DATE: 20220713
